FAERS Safety Report 8491531 (Version 3)
Quarter: 2012Q4

REPORT INFORMATION
  Report Type: 
  Country: US (occurrence: US)
  Receive Date: 20120403
  Receipt Date: 20121211
  Transmission Date: 20130627
  Serious: No
  Sender: FDA-Public Use
  Company Number: US-PFIZER INC-2012080748

PATIENT
  Age: 61 Year
  Sex: Male

DRUGS (3)
  1. XALKORI [Suspect]
     Indication: LUNG NEOPLASM MALIGNANT
     Dosage: 250 mg, 2x/day
     Dates: start: 20111219
  2. XALKORI [Suspect]
     Dosage: UNK
  3. XALKORI [Suspect]
     Dosage: UNK

REACTIONS (2)
  - Seasonal allergy [Unknown]
  - Hypersensitivity [Unknown]
